FAERS Safety Report 6711827-5 (Version None)
Quarter: 2010Q2

REPORT INFORMATION
  Report Type: 
  Country: None (occurrence: None)
  Receive Date: 20100505
  Receipt Date: 20100422
  Transmission Date: 20101027
  Serious: Yes (Hospitalization)
  Sender: FDA-Public Use
  Company Number: ES-ELI_LILLY_AND_COMPANY-ES201004006144

PATIENT
  Sex: Female
  Weight: 55 kg

DRUGS (4)
  1. FORTEO [Suspect]
     Indication: OSTEOPOROSIS
     Dosage: 20 UG, DAILY (1/D)
     Route: 058
     Dates: start: 20090513, end: 20100408
  2. CODRAL [Concomitant]
     Indication: ANTIINFLAMMATORY THERAPY
     Dosage: UNK, DAILY (1/D)
     Route: 048
     Dates: start: 20080101
  3. LORAZEPAM [Concomitant]
     Indication: ANXIETY
     Dosage: UNK, DAILY (1/D)
     Route: 048
  4. ADOLONTA [Concomitant]
     Indication: PAIN
     Dosage: UNK, UNKNOWN
     Route: 048

REACTIONS (1)
  - INTESTINAL OBSTRUCTION [None]
